FAERS Safety Report 7003989-X (Version None)
Quarter: 2010Q3

REPORT INFORMATION
  Report Type: 
  Country: None (occurrence: None)
  Receive Date: 20100920
  Receipt Date: 20100115
  Transmission Date: 20110219
  Serious: No
  Sender: FDA-Public Use
  Company Number: US-WYE-H13076210

PATIENT
  Sex: Female
  Weight: 81.72 kg

DRUGS (7)
  1. PRISTIQ [Suspect]
     Indication: DEPRESSION
     Route: 048
     Dates: start: 20090101, end: 20100101
  2. ACETYLSALICYLIC ACID [Concomitant]
  3. ERGOCALCIFEROL [Concomitant]
  4. FISH OIL, HYDROGENATED [Concomitant]
  5. CENTRUM SILVER [Concomitant]
  6. LOTREL [Concomitant]
  7. METFORMIN [Concomitant]

REACTIONS (7)
  - ABNORMAL DREAMS [None]
  - DRUG WITHDRAWAL SYNDROME [None]
  - DRY SKIN [None]
  - HYPERHIDROSIS [None]
  - INSOMNIA [None]
  - RASH PRURITIC [None]
  - SKIN EXFOLIATION [None]
